FAERS Safety Report 9934800 (Version 2)
Quarter: 2014Q1

REPORT INFORMATION
  Report Type: Report from Study
  Country: JP (occurrence: JP)
  Receive Date: 20140228
  Receipt Date: 20140307
  Transmission Date: 20141002
  Serious: Yes (Death)
  Sender: FDA-Public Use
  Company Number: JP-TAKEDA-2014TJP001954

PATIENT
  Age: 91 Year
  Sex: Female

DRUGS (2)
  1. ALOGLIPTIN [Suspect]
     Indication: TYPE 2 DIABETES MELLITUS
     Dosage: 25 MG, QD
     Route: 048
     Dates: start: 20130222, end: 20130411
  2. RISPERDAL [Concomitant]
     Dosage: UNK
     Route: 048
     Dates: end: 20130411

REACTIONS (2)
  - Pneumonia [Fatal]
  - Aspiration [Fatal]
